FAERS Safety Report 5285286-6 (Version None)
Quarter: 2007Q2

REPORT INFORMATION
  Report Type: 
  Country: None (occurrence: None)
  Receive Date: 20070403
  Receipt Date: 20070323
  Transmission Date: 20071010
  Serious: Yes (Hospitalization)
  Sender: FDA-Public Use
  Company Number: FR-PFIZER INC-2007023912

PATIENT
  Age: 49 Year
  Sex: Female

DRUGS (2)
  1. CELEBREX [Suspect]
     Route: 048
     Dates: start: 20070206, end: 20070215
  2. DOCETAXEL [Suspect]
     Route: 042
     Dates: start: 20070206, end: 20070206

REACTIONS (3)
  - AGRANULOCYTOSIS [None]
  - PARAESTHESIA MUCOSAL [None]
  - RASH [None]
